FAERS Safety Report 6908421-X (Version None)
Quarter: 2010Q3

REPORT INFORMATION
  Report Type: 
  Country: None (occurrence: None)
  Receive Date: 20100805
  Receipt Date: 20100730
  Transmission Date: 20110219
  Serious: Yes (Death, Hospitalization, Disabling)
  Sender: FDA-Public Use
  Company Number: JP-BAYER-201012371BYL

PATIENT
  Age: 46 Year
  Sex: Female
  Weight: 51 kg

DRUGS (8)
  1. NEXAVAR [Suspect]
     Indication: HEPATIC NEOPLASM MALIGNANT
     Dosage: UNIT DOSE: 200 MG
     Route: 048
     Dates: start: 20090101
  2. NEXAVAR [Suspect]
     Dosage: TOTAL DAILY DOSE: 400 MG  UNIT DOSE: 200 MG
     Route: 048
     Dates: start: 20090708, end: 20090909
  3. NEXAVAR [Suspect]
     Dosage: UNIT DOSE: 200 MG
     Route: 048
     Dates: start: 20100105, end: 20100426
  4. NEXAVAR [Suspect]
     Dosage: UNIT DOSE: 200 MG
     Route: 048
     Dates: start: 20090909
  5. NEXAVAR [Suspect]
     Dosage: 400MG-600MG EVERY OTHER DAY
     Route: 048
     Dates: start: 20091104, end: 20091217
  6. DIOVAN [Concomitant]
     Dosage: SINCE BEFORE ADMINISTRATION
     Route: 048
  7. LASIX [Concomitant]
     Route: 048
     Dates: start: 20090708
  8. FARMORUBICIN [Concomitant]
     Route: 013
     Dates: start: 20091218, end: 20091218

REACTIONS (9)
  - ALANINE AMINOTRANSFERASE INCREASED [None]
  - ALOPECIA [None]
  - ASCITES [None]
  - DIARRHOEA [None]
  - HEPATIC FUNCTION ABNORMAL [None]
  - HEPATIC NEOPLASM MALIGNANT [None]
  - HYPERBILIRUBINAEMIA [None]
  - OEDEMA [None]
  - PALMAR-PLANTAR ERYTHRODYSAESTHESIA SYNDROME [None]
